FAERS Safety Report 24539664 (Version 2)
Quarter: 2024Q4

REPORT INFORMATION
  Report Type: Spontaneous
  Country: SE (occurrence: SE)
  Receive Date: 20241023
  Receipt Date: 20241107
  Transmission Date: 20250114
  Serious: Yes (Death, Hospitalization, Other)
  Sender: TEVA
  Company Number: SE-TEVA-VS-3254954

PATIENT
  Age: 21 Month
  Sex: Female

DRUGS (14)
  1. DASATINIB [Suspect]
     Active Substance: DASATINIB
     Indication: Neuroblastoma
     Route: 065
     Dates: start: 202202
  2. VINCRISTINE SULFATE [Suspect]
     Active Substance: VINCRISTINE SULFATE
     Indication: Neuroblastoma
     Dosage: FOUR CYCLES
     Route: 065
     Dates: start: 202011
  3. VINCRISTINE SULFATE [Suspect]
     Active Substance: VINCRISTINE SULFATE
     Indication: Neuroblastoma
     Dosage: AS A PART OF RAPID COJEC INDUCTION THERAPY
     Route: 065
     Dates: start: 202008
  4. MELPHALAN HYDROCHLORIDE [Suspect]
     Active Substance: MELPHALAN HYDROCHLORIDE
     Indication: Neuroblastoma
     Dosage: MELPHALAN HYDROCHLORIDE
     Route: 065
     Dates: start: 202108
  5. CARBOPLATIN [Suspect]
     Active Substance: CARBOPLATIN
     Indication: Neuroblastoma
     Dosage: AS A PART OF RAPID COJEC INDUCTION THERAPY
     Route: 065
     Dates: start: 202008
  6. DOXORUBICIN [Suspect]
     Active Substance: DOXORUBICIN
     Indication: Neuroblastoma
     Dosage: FOUR CYCLES
     Route: 065
     Dates: start: 202011
  7. IRINOTECAN [Suspect]
     Active Substance: IRINOTECAN
     Indication: Neuroblastoma
     Dosage: THREE CYCLES
     Route: 065
     Dates: start: 202101
  8. IRINOTECAN [Suspect]
     Active Substance: IRINOTECAN
     Indication: Neuroblastoma
     Route: 065
     Dates: start: 202202
  9. CISPLATIN [Suspect]
     Active Substance: CISPLATIN
     Indication: Neuroblastoma
     Dosage: AS A PART OF RAPID COJEC INDUCTION THERAPY
     Route: 065
     Dates: start: 202008
  10. TOPOTECAN [Suspect]
     Active Substance: TOPOTECAN HYDROCHLORIDE
     Indication: Neuroblastoma
     Dosage: FOUR CYCLES
     Route: 065
     Dates: start: 202011
  11. TOPOTECAN [Suspect]
     Active Substance: TOPOTECAN HYDROCHLORIDE
     Indication: Neuroblastoma
     Route: 065
     Dates: start: 2021
  12. CYCLOPHOSPHAMIDE [Suspect]
     Active Substance: CYCLOPHOSPHAMIDE
     Indication: Neuroblastoma
     Dosage: AS A PART OF RAPID COJEC INDUCTION THERAPY
     Route: 065
     Dates: start: 202008
  13. CELECOXIB [Suspect]
     Active Substance: CELECOXIB
     Indication: Neuroblastoma
     Route: 065
     Dates: start: 202101
  14. ETOPOSIDE [Suspect]
     Active Substance: ETOPOSIDE
     Indication: Neuroblastoma
     Dosage: AS A PART OF RAPID COJEC INDUCTION THERAPY
     Route: 065
     Dates: start: 202008

REACTIONS (3)
  - Drug ineffective [Fatal]
  - Thrombocytopenia [Unknown]
  - Neutropenia [Unknown]

NARRATIVE: CASE EVENT DATE: 20210101
